FAERS Safety Report 13937989 (Version 2)
Quarter: 2017Q3

REPORT INFORMATION
  Report Type: Other
  Country: NO (occurrence: NO)
  Receive Date: 20170905
  Receipt Date: 20170912
  Transmission Date: 20171127
  Serious: Yes (Other)
  Sender: FDA-Public Use
  Company Number: NO-CELLTRION HEALTHCARE JAPAN K.K.-2017NO011715

PATIENT

DRUGS (4)
  1. INFLECTRA [Suspect]
     Active Substance: INFLIXIMAB-DYYB
     Indication: RHEUMATOID ARTHRITIS
     Dosage: 3 MG/KG, CYCLIC, WEEK 0-2-6, THEN EVERY 8TH WEEK; IV DRIP
     Route: 041
     Dates: start: 20170315, end: 20170530
  2. METHOTREXATE SODIUM. [Suspect]
     Active Substance: METHOTREXATE SODIUM
     Indication: RHEUMATOID ARTHRITIS
     Dosage: 25 MG, 1/WEEK, ORAL
     Route: 048
     Dates: end: 20170530
  3. VALTREX [Concomitant]
     Active Substance: VALACYCLOVIR HYDROCHLORIDE
     Dosage: UNK
  4. NEURONTIN [Concomitant]
     Active Substance: GABAPENTIN

REACTIONS (1)
  - Follicle centre lymphoma, follicular grade I, II, III stage III [Unknown]

NARRATIVE: CASE EVENT DATE: 201705
